FAERS Safety Report 7826703-4 (Version None)
Quarter: 2011Q4

REPORT INFORMATION
  Report Type: 
  Country: None (occurrence: None)
  Receive Date: 20111020
  Receipt Date: 20110815
  Transmission Date: 20120403
  Serious: No
  Sender: FDA-Public Use
  Company Number: US-MYLANLABS-2011S1017034

PATIENT
  Age: 13 Year
  Sex: Female
  Weight: 38.56 kg

DRUGS (2)
  1. CLONIDINE [Suspect]
     Indication: TOURETTE'S DISORDER
     Dosage: QW
     Route: 062
     Dates: start: 20110401
  2. CLONIDINE [Suspect]
     Indication: ATTENTION DEFICIT/HYPERACTIVITY DISORDER
     Dosage: QW
     Route: 062
     Dates: start: 20110401

REACTIONS (1)
  - APPLICATION SITE DISCOLOURATION [None]
